FAERS Safety Report 20818040 (Version 1)
Quarter: 2022Q2

REPORT INFORMATION
  Report Type: Spontaneous
  Country: US (occurrence: US)
  Receive Date: 20220512
  Receipt Date: 20220512
  Transmission Date: 20220721
  Serious: No
  Sender: FDA-Public Use
  Company Number: US-PFIZER INC-2020064624

PATIENT
  Age: 79 Year
  Sex: Female
  Weight: 90.72 kg

DRUGS (2)
  1. VYNDAQEL [Suspect]
     Active Substance: TAFAMIDIS MEGLUMINE
     Indication: Amyloidosis
     Dosage: 4 DF, 1X/DAY
     Route: 048
  2. VYNDAQEL [Suspect]
     Active Substance: TAFAMIDIS MEGLUMINE
     Dosage: 1 DF, 1X/DAY
     Route: 048

REACTIONS (3)
  - Weight decreased [Unknown]
  - Intentional product use issue [Unknown]
  - Off label use [Unknown]
